FAERS Safety Report 5299316-9 (Version None)
Quarter: 2007Q2

REPORT INFORMATION
  Report Type: 
  Country: None (occurrence: None)
  Receive Date: 20070417
  Receipt Date: 20070402
  Transmission Date: 20071010
  Serious: Yes (Other)
  Sender: FDA-Public Use
  Company Number: US-ELI_LILLY_AND_COMPANY-US200703002716

PATIENT
  Sex: Female

DRUGS (1)
  1. EVISTA [Suspect]
     Indication: PROPHYLAXIS
     Route: 048
     Dates: start: 20001201, end: 20031201

REACTIONS (3)
  - BLOOD CHOLESTEROL ABNORMAL [None]
  - BREAST CANCER [None]
  - CORONARY ARTERY OCCLUSION [None]
